FAERS Safety Report 5720874-1 (Version None)
Quarter: 2008Q2

REPORT INFORMATION
  Report Type: 
  Country: None (occurrence: None)
  Receive Date: 20080425
  Receipt Date: 20080425
  Transmission Date: 20081010
  Serious: Yes (Other)
  Sender: FDA-Public Use
  Company Number: None

PATIENT
  Age: 48 Year
  Sex: Female
  Weight: 47.6277 kg

DRUGS (1)
  1. ESTRACE [Suspect]
     Indication: HYSTERECTOMY
     Dosage: 1MG ONCE A DAY
     Dates: start: 20080326, end: 20080414

REACTIONS (7)
  - EMOTIONAL DISORDER [None]
  - HOT FLUSH [None]
  - MALAISE [None]
  - NAUSEA [None]
  - PHARMACEUTICAL PRODUCT COMPLAINT [None]
  - RESPIRATORY DISORDER [None]
  - TREMOR [None]
